FAERS Safety Report 6481098-6 (Version None)
Quarter: 2009Q4

REPORT INFORMATION
  Report Type: 
  Country: None (occurrence: None)
  Receive Date: 20091203
  Receipt Date: 20091119
  Transmission Date: 20100525
  Serious: Yes (Hospitalization)
  Sender: FDA-Public Use
  Company Number: 1000010462

PATIENT
  Age: 84 Year
  Sex: Female

DRUGS (6)
  1. ESCITALOPRAM [Suspect]
     Dosage: 5 MG (5 MG,1 IN 1 D),ORAL
     Route: 048
  2. DIAZEPAM [Suspect]
     Dosage: ORAL
     Route: 048
     Dates: end: 20090129
  3. ZALDIAR (TABLETS) [Suspect]
     Indication: CONTUSION
     Dosage: 37.5 / 325 MG (1 IN 1 D),ORAL
     Route: 048
     Dates: start: 20090126, end: 20090129
  4. LYRICA [Suspect]
     Indication: POLYNEUROPATHY
     Dosage: 25 MG (25 MG,1 IN 1 D),ORAL
     Route: 048
  5. TENSOGRADAL (TABLETS) [Concomitant]
  6. OMEPRAZOLE [Concomitant]

REACTIONS (6)
  - DEPRESSED LEVEL OF CONSCIOUSNESS [None]
  - DISORIENTATION [None]
  - DRUG INTERACTION [None]
  - DYSPNOEA [None]
  - PYREXIA [None]
  - SOMNOLENCE [None]
